FAERS Safety Report 9283012 (Version 1)
Quarter: 2013Q2

REPORT INFORMATION
  Report Type: Spontaneous
  Country: US (occurrence: US)
  Receive Date: 20130510
  Receipt Date: 20130510
  Transmission Date: 20140414
  Serious: No
  Sender: FDA-Public Use
  Company Number: US-GLAXOSMITHKLINE-A0973257A

PATIENT
  Age: 52 Year
  Sex: Female

DRUGS (8)
  1. TYKERB [Suspect]
     Dosage: 1250MGD PER DAY
     Route: 048
  2. IMMUNE FORMULA [Concomitant]
  3. HOMEOPATHIC MEDICATION [Concomitant]
  4. COD LIVER OIL [Concomitant]
     Route: 048
  5. VITAMIN D [Concomitant]
     Route: 048
  6. VITAMIN B COMPLEX [Concomitant]
     Route: 048
  7. VITAMIN C [Concomitant]
     Route: 048
  8. HERCEPTIN [Concomitant]

REACTIONS (2)
  - Alopecia [Recovered/Resolved]
  - Rash [Unknown]
